FAERS Safety Report 25461341 (Version 1)
Quarter: 2025Q2

REPORT INFORMATION
  Report Type: Spontaneous
  Country: LB (occurrence: LB)
  Receive Date: 20250620
  Receipt Date: 20250620
  Transmission Date: 20250717
  Serious: Yes (Hospitalization, Other)
  Sender: ADMA BIOLOGICS
  Company Number: LB-ADMA BIOLOGICS INC.-LB-2025ADM000194

PATIENT
  Age: 26 Year
  Sex: Female

DRUGS (7)
  1. HUMAN IMMUNOGLOBULIN G [Suspect]
     Active Substance: HUMAN IMMUNOGLOBULIN G
     Indication: Immune thrombocytopenia
     Route: 042
  2. HUMAN IMMUNOGLOBULIN G [Suspect]
     Active Substance: HUMAN IMMUNOGLOBULIN G
     Dosage: 1 GRAM PER KILOGRAM, DAY 14 AND 15, QD OVER 48 HOUR PERIOD
     Route: 042
  3. DEXAMETHASONE [Suspect]
     Active Substance: DEXAMETHASONE
     Indication: Immune thrombocytopenia
     Dosage: 40 MG, QD
     Route: 065
  4. DEXAMETHASONE [Suspect]
     Active Substance: DEXAMETHASONE
     Dosage: 6 MILLIGRAM, BID
     Route: 042
  5. VITAMINS NOS [Concomitant]
     Active Substance: VITAMINS
     Indication: Product used for unknown indication
     Route: 065
  6. ASPIRIN [Concomitant]
     Active Substance: ASPIRIN
     Indication: Pre-eclampsia
     Route: 065
  7. NIFEDIPINE [Concomitant]
     Active Substance: NIFEDIPINE
     Indication: Gestational hypertension
     Route: 065

REACTIONS (3)
  - Oligohydramnios [Recovered/Resolved]
  - Maternal exposure during pregnancy [Unknown]
  - Off label use [Unknown]
